FAERS Safety Report 6220754-1 (Version None)
Quarter: 2009Q2

REPORT INFORMATION
  Report Type: 
  Country: None (occurrence: None)
  Receive Date: 20090610
  Receipt Date: 20090526
  Transmission Date: 20091009
  Serious: Yes (Life-Threatening, Hospitalization)
  Sender: FDA-Public Use
  Company Number: FR-AMGEN-QUU348423

PATIENT
  Sex: Male

DRUGS (7)
  1. NEUPOGEN [Suspect]
     Indication: DRUG USE FOR UNKNOWN INDICATION
  2. MABTHERA [Suspect]
     Route: 042
     Dates: start: 20090211, end: 20090330
  3. ADRIAMYCIN RDF [Suspect]
     Route: 042
     Dates: start: 20090212
  4. ENDOXAN [Suspect]
     Route: 042
     Dates: start: 20090212
  5. VINCRISTINE [Suspect]
     Route: 042
     Dates: start: 20090212
  6. PREDNISONE [Suspect]
     Route: 042
     Dates: start: 20090211, end: 20090216
  7. METHOTREXATE [Suspect]
     Route: 042
     Dates: start: 20090211, end: 20090330

REACTIONS (1)
  - LUNG DISORDER [None]
